FAERS Safety Report 21892798 (Version 1)
Quarter: 2023Q1

REPORT INFORMATION
  Report Type: Spontaneous
  Country: US (occurrence: US)
  Receive Date: 20230120
  Receipt Date: 20230120
  Transmission Date: 20230418
  Serious: Yes (Other)
  Sender: FDA-Public Use
  Company Number: US-ANIPHARMA-2023-US-001466

PATIENT
  Sex: Female

DRUGS (2)
  1. ARIMIDEX [Suspect]
     Active Substance: ANASTROZOLE
     Indication: Breast cancer metastatic
     Route: 065
  2. PALBOCICLIB [Suspect]
     Active Substance: PALBOCICLIB
     Route: 065

REACTIONS (2)
  - Disease progression [Unknown]
  - Metastases to liver [Unknown]
